FAERS Safety Report 7151148-2 (Version None)
Quarter: 2010Q4

REPORT INFORMATION
  Report Type: 
  Country: None (occurrence: None)
  Receive Date: 20101210
  Receipt Date: 20101130
  Transmission Date: 20110411
  Serious: Yes (Death, Hospitalization)
  Sender: FDA-Public Use
  Company Number: US-ACTELION-A-US2010-41646

PATIENT

DRUGS (16)
  1. BOSENTAN TABLET 62.5 MG US [Suspect]
     Indication: PULMONARY ARTERIAL HYPERTENSION
     Dosage: 62.5 MG, BID
     Route: 048
     Dates: start: 20080515
  2. REVATIO [Concomitant]
  3. COUMADIN [Concomitant]
  4. PROAIR HFA [Concomitant]
  5. MULTI-VITAMIN [Concomitant]
  6. CYMBALTA [Concomitant]
  7. ADVAIR DISKUS 100/50 [Concomitant]
  8. LIPITOR [Concomitant]
  9. GABAPENTIN [Concomitant]
  10. PLAQUENIL [Concomitant]
  11. CARDIZEM CD [Concomitant]
  12. AZATHIOPRINE [Concomitant]
  13. PHOSLO [Concomitant]
  14. NYSTATIN [Concomitant]
  15. COLACE [Concomitant]
  16. MS CONTIN [Concomitant]

REACTIONS (11)
  - ATRIAL FIBRILLATION [None]
  - ATRIAL FLUTTER [None]
  - ATRIOVENTRICULAR BLOCK [None]
  - BUNDLE BRANCH BLOCK RIGHT [None]
  - DEATH [None]
  - HYPOTENSION [None]
  - OXYGEN SATURATION DECREASED [None]
  - PLEURAL EFFUSION [None]
  - PNEUMONIA [None]
  - SUPRAVENTRICULAR EXTRASYSTOLES [None]
  - THROMBOCYTOPENIA [None]
